FAERS Safety Report 7720190-2 (Version None)
Quarter: 2011Q3

REPORT INFORMATION
  Report Type: 
  Country: None (occurrence: None)
  Receive Date: 20110825
  Receipt Date: 20110809
  Transmission Date: 20111222
  Serious: Yes (Death)
  Sender: FDA-Public Use
  Company Number: JPI-P-014787

PATIENT
  Age: 52 Year
  Sex: Male

DRUGS (6)
  1. XYREM [Suspect]
     Indication: PRODUCT USED FOR UNKNOWN INDICATION
     Dosage: 6 GM (3 GM, 2 IN 1 D), ORAL, 7.5 GM (3.75 GM, 2 IN 1 D), ORAL
     Route: 048
     Dates: start: 20040330, end: 20091116
  2. XYREM [Suspect]
     Indication: PRODUCT USED FOR UNKNOWN INDICATION
     Dosage: 6 GM (3 GM, 2 IN 1 D), ORAL, 7.5 GM (3.75 GM, 2 IN 1 D), ORAL
     Route: 048
     Dates: start: 20031209
  3. METOPROLOL SUCCINATE [Concomitant]
  4. OXYCODONE HCL [Concomitant]
  5. BENAZEPRIL HYDROCHLORIDE [Concomitant]
  6. HYDROCODONE BITARTRATE AND ACETAMINOPHEN [Concomitant]

REACTIONS (1)
  - SUDDEN CARDIAC DEATH [None]
